FAERS Safety Report 9331778 (Version 1)
Quarter: 2013Q2

REPORT INFORMATION
  Report Type: Spontaneous
  Country: US (occurrence: None)
  Receive Date: 20130603
  Receipt Date: 20130603
  Transmission Date: 20140414
  Serious: Yes (Other)
  Sender: FDA-Public Use
  Company Number: AUR-APL-2013-04353

PATIENT
  Sex: Female

DRUGS (2)
  1. VENLAFAXINE [Suspect]
     Indication: PANIC DISORDER
     Dosage: 75 MG (75 MG, 1 IN 1 D), UNKNOWN
  2. VENLAFAXINE [Suspect]
     Indication: ANXIETY
     Dosage: 75 MG (75 MG, 1 IN 1 D), UNKNOWN

REACTIONS (6)
  - Hypertension [None]
  - Bruxism [None]
  - Headache [None]
  - Suicidal behaviour [None]
  - Product substitution issue [None]
  - Drug effect decreased [None]
